FAERS Safety Report 9778492 (Version 1)
Quarter: 2013Q4

REPORT INFORMATION
  Report Type: Spontaneous
  Country: US (occurrence: None)
  Receive Date: 20131220
  Receipt Date: 20131220
  Transmission Date: 20140711
  Serious: Yes (Disabling)
  Sender: FDA-Public Use
  Company Number: None

PATIENT
  Sex: Male
  Weight: 94.1 kg

DRUGS (1)
  1. NEXIUM [Suspect]
     Indication: SPINAL FRACTURE
     Route: 048

REACTIONS (2)
  - Spinal compression fracture [None]
  - Spinal fracture [None]
